FAERS Safety Report 8592133-3 (Version None)
Quarter: 2012Q3

REPORT INFORMATION
  Report Type: 
  Country: None (occurrence: None)
  Receive Date: 20120814
  Receipt Date: 20120810
  Transmission Date: 20120928
  Serious: Yes (Hospitalization)
  Sender: FDA-Public Use
  Company Number: IT-BAYER-2012-081612

PATIENT
  Age: 80 Year
  Sex: Male

DRUGS (6)
  1. MESALAMINE [Concomitant]
  2. ESOMEPRAZOLE [Concomitant]
  3. RIFAXIMIN [Concomitant]
     Route: 048
  4. SIMESTAT [Concomitant]
     Route: 048
  5. ALFUZOSIN HYDROCHLORIDE [Concomitant]
  6. ASPIRIN [Suspect]
     Dosage: 100 MG, QD
     Route: 048
     Dates: start: 20110601, end: 20120601

REACTIONS (3)
  - PALLOR [None]
  - DYSPNOEA EXERTIONAL [None]
  - HAEMORRHAGIC ANAEMIA [None]
